FAERS Safety Report 5766921-2 (Version None)
Quarter: 2008Q2

REPORT INFORMATION
  Report Type: 
  Country: None (occurrence: None)
  Receive Date: 20080606
  Receipt Date: 20071109
  Transmission Date: 20081010
  Serious: Yes (Life-Threatening)
  Sender: FDA-Public Use
  Company Number: 2007S1011533

PATIENT
  Age: 24 Month
  Sex: Female

DRUGS (3)
  1. ETOPOSIDE [Suspect]
     Indication: RETINOBLASTOMA
     Dosage: EVERY THREE WEEKS
  2. VINCRISTINE [Concomitant]
  3. CARBOPLATIN [Concomitant]

REACTIONS (1)
  - MYELOID LEUKAEMIA [None]
